FAERS Safety Report 26130560 (Version 1)
Quarter: 2025Q4

REPORT INFORMATION
  Report Type: Spontaneous
  Country: CN (occurrence: CN)
  Receive Date: 20251208
  Receipt Date: 20251208
  Transmission Date: 20260119
  Serious: Yes (Other)
  Sender: Kenvue
  Company Number: CN-KENVUE-20251201505

PATIENT
  Age: 21 Year
  Weight: 65 kg

DRUGS (6)
  1. CHILDRENS MOTRIN [Suspect]
     Active Substance: IBUPROFEN
     Indication: Respiratory tract infection
     Dosage: 15 MILLILITER, SINGLE
  2. CHILDRENS MOTRIN [Suspect]
     Active Substance: IBUPROFEN
     Indication: Pyrexia
  3. CHILDRENS MOTRIN [Suspect]
     Active Substance: IBUPROFEN
     Indication: Headache
  4. CHILDRENS MOTRIN [Suspect]
     Active Substance: IBUPROFEN
     Indication: Back pain
  5. CHILDRENS MOTRIN [Suspect]
     Active Substance: IBUPROFEN
     Indication: Oropharyngeal pain
  6. CHILDRENS MOTRIN [Suspect]
     Active Substance: IBUPROFEN
     Indication: Rhinorrhoea

REACTIONS (3)
  - Off label use [Unknown]
  - Rash [Recovering/Resolving]
  - Pruritus [Recovering/Resolving]
